FAERS Safety Report 11137937 (Version 2)
Quarter: 2016Q2

REPORT INFORMATION
  Report Type: Report from Study
  Country: US (occurrence: US)
  Receive Date: 20150526
  Receipt Date: 20160516
  Transmission Date: 20160815
  Serious: No
  Sender: FDA-Public Use
  Company Number: US-MALLINCKRODT-T201404422

PATIENT
  Sex: Female

DRUGS (1)
  1. REPOSITORY CORTICOTROPIN INJECTION [Suspect]
     Active Substance: CORTICOTROPIN
     Indication: DERMATOMYOSITIS
     Dosage: 80 U TWICE PER WEEK
     Route: 030
     Dates: start: 20141130

REACTIONS (6)
  - Chills [Unknown]
  - Depressed mood [Unknown]
  - Malaise [Not Recovered/Not Resolved]
  - Ageusia [Not Recovered/Not Resolved]
  - Palpitations [Unknown]
  - Blood pressure increased [Not Recovered/Not Resolved]

NARRATIVE: CASE EVENT DATE: 2014
